FAERS Safety Report 23600249 (Version 1)
Quarter: 2024Q1

REPORT INFORMATION
  Report Type: Report from Study
  Country: US (occurrence: US)
  Receive Date: 20240306
  Receipt Date: 20240306
  Transmission Date: 20240410
  Serious: No
  Sender: FDA-Public Use
  Company Number: US-ALXN-202402USA001993US

PATIENT
  Sex: Female

DRUGS (1)
  1. STRENSIQ [Suspect]
     Active Substance: ASFOTASE ALFA
     Indication: Product used for unknown indication
     Dosage: 65 MILLIGRAM, SIX TIMES/WEEK
     Route: 058
     Dates: start: 20210506

REACTIONS (2)
  - Lip blister [Unknown]
  - Lip swelling [Not Recovered/Not Resolved]
